FAERS Safety Report 12451039 (Version 1)
Quarter: 2016Q2

REPORT INFORMATION
  Report Type: Spontaneous
  Country: US (occurrence: US)
  Receive Date: 20160609
  Receipt Date: 20160609
  Transmission Date: 20160815
  Serious: Yes (Hospitalization, Other)
  Sender: FDA-Public Use
  Company Number: US-NOVOPROD-495277

PATIENT
  Age: 58 Year
  Sex: Male
  Weight: 104.76 kg

DRUGS (5)
  1. NOVOLOG [Suspect]
     Active Substance: INSULIN ASPART
     Dosage: 30 U, TID
     Route: 058
     Dates: end: 201605
  2. NOVOLOG [Suspect]
     Active Substance: INSULIN ASPART
     Dosage: INCREASED DOSE
     Route: 058
     Dates: start: 201605, end: 201605
  3. NOVOLOG [Suspect]
     Active Substance: INSULIN ASPART
     Dosage: UNKNOWN
     Route: 058
     Dates: start: 201605
  4. NOVOLOG [Suspect]
     Active Substance: INSULIN ASPART
     Indication: TYPE 2 DIABETES MELLITUS
     Dosage: 30 U, TID
     Route: 058
     Dates: start: 2013
  5. GLIPIZIDE. [Concomitant]
     Active Substance: GLIPIZIDE
     Indication: TYPE 2 DIABETES MELLITUS

REACTIONS (2)
  - Food poisoning [Recovered/Resolved]
  - Blood glucose increased [Recovered/Resolved]

NARRATIVE: CASE EVENT DATE: 201605
